FAERS Safety Report 9851952 (Version 2)
Quarter: 2014Q2

REPORT INFORMATION
  Report Type: Spontaneous
  Country: US (occurrence: None)
  Receive Date: 20131223
  Receipt Date: 20131223
  Transmission Date: 20141212
  Serious: No
  Sender: FDA-Public Use
  Company Number: PHEH2013US014577

PATIENT
  Sex: Female

DRUGS (2)
  1. GILENYA (FINGOLIMOD) CAPSULE, 0.5MG [Suspect]
     Indication: MULTIPLE SCLEROSIS
     Route: 048
     Dates: start: 2011
  2. GILENYA (FINGOLIMOD) CAPSULE, 0.5MG [Suspect]
     Indication: OFF LABEL USE
     Route: 048
     Dates: start: 2011

REACTIONS (2)
  - Off label use [None]
  - No adverse event [None]
